FAERS Safety Report 9580192 (Version 1)
Quarter: 2013Q3

REPORT INFORMATION
  Report Type: Spontaneous
  Country: US (occurrence: None)
  Receive Date: 20130916
  Receipt Date: 20130916
  Transmission Date: 20140515
  Serious: Yes (Other)
  Sender: FDA-Public Use
  Company Number: JPI-P-029725

PATIENT
  Age: 32 Year
  Sex: Male

DRUGS (5)
  1. XYREM [Suspect]
     Indication: CATAPLEXY
     Dosage: 6 GM  (3 GM, 2 IN 1 D), ORAL
     Route: 048
     Dates: start: 201001, end: 2010
  2. CITALOPRAM [Suspect]
     Indication: ANXIETY
  3. CITALOPRAM [Suspect]
     Indication: DEPRESSION
  4. PROTRIPTYLINE [Concomitant]
  5. ARMODAFINIL [Concomitant]

REACTIONS (2)
  - Memory impairment [None]
  - Condition aggravated [None]
